FAERS Safety Report 7072907-0 (Version None)
Quarter: 2010Q4

REPORT INFORMATION
  Report Type: 
  Country: None (occurrence: None)
  Receive Date: 20101029
  Receipt Date: 20100329
  Transmission Date: 20110411
  Serious: No
  Sender: FDA-Public Use
  Company Number: A0852396A

PATIENT
  Age: 64 Year
  Sex: Female

DRUGS (4)
  1. ADVAIR DISKUS 100/50 [Suspect]
     Indication: ASTHMA
     Dosage: 1PUFF TWICE PER DAY
     Route: 055
     Dates: start: 20100301, end: 20100327
  2. NASONEX [Suspect]
  3. PLAQUENIL [Concomitant]
  4. ENBREL [Concomitant]

REACTIONS (1)
  - BLISTER [None]
